FAERS Safety Report 18943984 (Version 1)
Quarter: 2021Q1

REPORT INFORMATION
  Report Type: Spontaneous
  Country: PT (occurrence: PT)
  Receive Date: 20210226
  Receipt Date: 20210226
  Transmission Date: 20210420
  Serious: Yes (Hospitalization, Other)
  Sender: FDA-Public Use
  Company Number: PT-AUROBINDO-AUR-APL-2021-007729

PATIENT
  Age: 53 Year
  Sex: Female

DRUGS (2)
  1. LITHIUM. [Interacting]
     Active Substance: LITHIUM
     Indication: ARTHRALGIA
     Dosage: 400 MILLIGRAM, TWO TIMES A DAY
     Route: 048
  2. IBUPROFEN. [Suspect]
     Active Substance: IBUPROFEN
     Indication: ARTHRALGIA
     Dosage: 1800 MILLIGRAM, ONCE A DAY (8?8HOURS)
     Route: 048

REACTIONS (4)
  - Drug interaction [Recovered/Resolved with Sequelae]
  - Antipsychotic drug level above therapeutic [Recovered/Resolved]
  - Labelled drug-drug interaction medication error [Unknown]
  - Toxicity to various agents [Recovered/Resolved with Sequelae]
